FAERS Safety Report 4589175-1 (Version None)
Quarter: 2005Q1

REPORT INFORMATION
  Report Type: 
  Country: None (occurrence: None)
  Receive Date: 20050215
  Receipt Date: 20050215
  Transmission Date: 20050727
  Serious: Yes (Other)
  Sender: FDA-Public Use
  Company Number: None

PATIENT
  Sex: Female
  Weight: 62.1428 kg

DRUGS (1)
  1. ESTROVEN   AMERICAN [Suspect]
     Indication: MENOPAUSE
     Dosage: 1 PILL AT NIGHT
     Dates: start: 20041212, end: 20050213

REACTIONS (2)
  - ALOPECIA [None]
  - HOT FLUSH [None]
